FAERS Safety Report 14995833 (Version 1)
Quarter: 2018Q2

REPORT INFORMATION
  Report Type: Spontaneous
  Country: US (occurrence: US)
  Receive Date: 20180522
  Receipt Date: 20180522
  Transmission Date: 20180711
  Serious: No
  Sender: FDA-Public Use
  Company Number: None

PATIENT
  Age: 6 Year
  Sex: Female

DRUGS (1)
  1. SINGULAIR [Suspect]
     Active Substance: MONTELUKAST SODIUM
     Indication: MULTIPLE ALLERGIES
     Route: 048
     Dates: start: 20150812, end: 20160512

REACTIONS (18)
  - Abdominal pain upper [None]
  - Headache [None]
  - Feeling guilty [None]
  - Dizziness [None]
  - Negative thoughts [None]
  - Nightmare [None]
  - Feeling abnormal [None]
  - Abnormal behaviour [None]
  - Fear of eating [None]
  - Depression [None]
  - Sleep disorder [None]
  - Anxiety [None]
  - Withdrawal syndrome [None]
  - Drug withdrawal headache [None]
  - Chest pain [None]
  - Violence-related symptom [None]
  - Thinking abnormal [None]
  - Emotional poverty [None]

NARRATIVE: CASE EVENT DATE: 20160518
